FAERS Safety Report 5819874-2 (Version None)
Quarter: 2008Q3

REPORT INFORMATION
  Report Type: 
  Country: None (occurrence: None)
  Receive Date: 20080723
  Receipt Date: 20080711
  Transmission Date: 20090109
  Serious: Yes (Other)
  Sender: FDA-Public Use
  Company Number: GB-MERCK-0201GBR00251M

PATIENT
  Age: 17 Year
  Sex: Female

DRUGS (8)
  1. SINGULAIR [Suspect]
     Route: 048
     Dates: start: 19990601, end: 20011001
  2. FLUTICASONE PROPIONATE [Concomitant]
     Route: 065
  3. SALMETEROL [Concomitant]
     Route: 065
  4. ALBUTEROL [Concomitant]
  5. PREDNISOLONE [Concomitant]
     Route: 065
  6. PREDNISOLONE [Concomitant]
     Route: 065
  7. PREDNISOLONE [Concomitant]
     Route: 065
  8. PREDNISOLONE [Concomitant]
     Route: 065

REACTIONS (3)
  - DRUG EXPOSURE DURING PREGNANCY [None]
  - MECONIUM STAIN [None]
  - PREMATURE RUPTURE OF MEMBRANES [None]
